FAERS Safety Report 3759224 (Version 4)
Quarter: 2020Q3

REPORT INFORMATION
  Report Type: Spontaneous
  Country: US (occurrence: None)
  Receive Date: 20020129
  Receipt Date: 20020321
  Transmission Date: 20201104
  Serious: Yes (Death, Hospitalization)
  Sender: FDA-Public Use
  Company Number: A201225

PATIENT
  Age: 22 Year
  Sex: Female
  Weight: 92.16 kg

DRUGS (5)
  1. TIMENTIN [Concomitant]
     Active Substance: CLAVULANATE POTASSIUM\TICARCILLIN DISODIUM
  2. AUGMENTIN [Concomitant]
     Active Substance: AMOXICILLIN\CLAVULANATE POTASSIUM
  3. VEETIDS [Concomitant]
     Active Substance: PENICILLIN V POTASSIUM
  4. CLINDAMYCIN. [Concomitant]
     Active Substance: CLINDAMYCIN
  5. ALATROFLOXACIN MESYLATE. [Suspect]
     Active Substance: ALATROFLOXACIN MESYLATE
     Indication: INFECTION
     Dosage: 300.00 MG TOTAL:INTRAVENOUS
     Route: 042
     Dates: start: 19990321, end: 19990323

REACTIONS (75)
  - Rash maculo-papular [None]
  - Multiple organ dysfunction syndrome [None]
  - Biopsy kidney abnormal [None]
  - Cholestasis [None]
  - Hepatitis fulminant [None]
  - Oedema peripheral [None]
  - Pleural effusion [None]
  - Atelectasis [None]
  - Blood pressure decreased [None]
  - Cardiac arrest [None]
  - Cholangiolitis [None]
  - Disseminated intravascular coagulation [None]
  - Fibrosis [None]
  - Kidney enlargement [None]
  - Lymphadenitis [None]
  - Haemangioma of liver [None]
  - Jaundice [None]
  - Malaise [None]
  - Dysstasia [None]
  - Anaemia [None]
  - Cardiac disorder [None]
  - Urinary tract infection [None]
  - Visual impairment [None]
  - Hyperhidrosis [None]
  - Cough [None]
  - Dyspnoea [None]
  - Biopsy heart abnormal [None]
  - Biopsy lymph gland abnormal [None]
  - Renal disorder [None]
  - Mental status changes [None]
  - Dermatitis [None]
  - Pruritus [None]
  - Laboratory test abnormal [None]
  - Mucosal disorder [None]
  - Platelet count decreased [None]
  - Cardiomegaly [None]
  - Abdominal distension [None]
  - Gastrointestinal disorder [None]
  - Prothrombin time prolonged [None]
  - Pulmonary oedema [None]
  - Viral infection [None]
  - Crepitations [None]
  - Dry mouth [None]
  - Ventricular hypertrophy [None]
  - Rash [None]
  - Chills [None]
  - Chest pain [None]
  - Coagulopathy [None]
  - Diarrhoea [None]
  - Headache [None]
  - Hepatotoxicity [None]
  - Hepatic steatosis [None]
  - Movement disorder [None]
  - Neck pain [None]
  - Neoplasm [None]
  - Lung disorder [None]
  - Pericardial effusion [None]
  - Activated partial thromboplastin time prolonged [None]
  - Blood calcium decreased [None]
  - Escherichia infection [None]
  - Pulmonary haemorrhage [None]
  - Pyrexia [None]
  - Lymphadenopathy [None]
  - Ventricular fibrillation [None]
  - Tenderness [None]
  - Hepatomegaly [None]
  - Vomiting [None]
  - Asthenia [None]
  - Bladder disorder [None]
  - Blood albumin decreased [None]
  - Encephalopathy [None]
  - Fluid overload [None]
  - Pulmonary congestion [None]
  - Sinus tachycardia [None]
  - Spleen disorder [None]

NARRATIVE: CASE EVENT DATE: 19990321
